FAERS Safety Report 10143030 (Version 3)
Quarter: 2014Q2

REPORT INFORMATION
  Report Type: Spontaneous
  Country: JP (occurrence: JP)
  Receive Date: 20140430
  Receipt Date: 20140606
  Transmission Date: 20141212
  Serious: Yes (Other)
  Sender: FDA-Public Use
  Company Number: JP-PFIZER INC-2014117018

PATIENT
  Age: 51 Year
  Sex: Female
  Weight: 76 kg

DRUGS (6)
  1. JZOLOFT [Suspect]
     Indication: DEPRESSION
     Dosage: 100 MG, 1X/DAY
     Route: 048
     Dates: start: 20111006, end: 20140419
  2. JZOLOFT [Suspect]
     Indication: OBSESSIVE-COMPULSIVE DISORDER
  3. KAMI-SHOYO-SAN [Suspect]
     Indication: MENOPAUSAL SYMPTOMS
     Dosage: 2.5 G, 3X/DAY
     Route: 048
     Dates: start: 20120913, end: 20140419
  4. HALCION [Concomitant]
     Indication: INSOMNIA
     Dosage: 0.25 MG, 1X/DAY
     Route: 048
     Dates: start: 20110224
  5. ABILIFY [Concomitant]
     Indication: DEPRESSION
     Dosage: 1.5 MG, 1X/DAY
     Route: 048
     Dates: start: 20111110, end: 20140405
  6. DEPAS [Concomitant]
     Indication: ANXIETY
     Dosage: 0.5 MG, 4X/DAY
     Route: 048
     Dates: start: 20101118

REACTIONS (8)
  - VIIth nerve paralysis [Not Recovered/Not Resolved]
  - Drug withdrawal syndrome [Not Recovered/Not Resolved]
  - Weight increased [Unknown]
  - Headache [Recovered/Resolved]
  - Pain [Unknown]
  - Neck pain [None]
  - Musculoskeletal pain [None]
  - Therapy cessation [None]
